FAERS Safety Report 6072845-6 (Version None)
Quarter: 2009Q1

REPORT INFORMATION
  Report Type: 
  Country: None (occurrence: None)
  Receive Date: 20090205
  Receipt Date: 20090130
  Transmission Date: 20090719
  Serious: Yes (Life-Threatening, Hospitalization, Other)
  Sender: FDA-Public Use
  Company Number: 2008SP010558

PATIENT
  Age: 58 Year
  Sex: Female

DRUGS (16)
  1. TEMODAR [Suspect]
     Indication: HEPATIC NEOPLASM
     Dosage: 200 MG/M2;QD;PO, 150 MG/M2;QD;PO
     Route: 048
     Dates: start: 20080513, end: 20080515
  2. TEMODAR [Suspect]
     Indication: NEOPLASM MALIGNANT
     Dosage: 200 MG/M2;QD;PO, 150 MG/M2;QD;PO
     Route: 048
     Dates: start: 20080513, end: 20080515
  3. TEMODAR [Suspect]
     Indication: HEPATIC NEOPLASM
     Dosage: 200 MG/M2;QD;PO, 150 MG/M2;QD;PO
     Route: 048
     Dates: start: 20080402
  4. TEMODAR [Suspect]
     Indication: NEOPLASM MALIGNANT
     Dosage: 200 MG/M2;QD;PO, 150 MG/M2;QD;PO
     Route: 048
     Dates: start: 20080402
  5. ABT-888 (INVESTIGATIONAL DRUG) [Suspect]
     Indication: NEOPLASM MALIGNANT
     Dosage: 80 MG;BID;PO, 40 MG;BID;PO
     Route: 048
     Dates: start: 20080513, end: 20080515
  6. ABT-888 (INVESTIGATIONAL DRUG) [Suspect]
     Indication: NEOPLASM MALIGNANT
     Dosage: 80 MG;BID;PO, 40 MG;BID;PO
     Route: 048
     Dates: start: 20080402
  7. SORAFENIB [Concomitant]
  8. TYLENOL (CAPLET) [Concomitant]
  9. IMODIUM [Concomitant]
  10. HYDROCODONE BITARTRATE [Concomitant]
  11. METOCLOPRAMIDE [Concomitant]
  12. ONDANSETRON [Concomitant]
  13. DIPHENHYDRAMINE HYDROCHLORIDE [Concomitant]
  14. OMEPRAZOLE [Concomitant]
  15. LANSOPRAZOLE [Concomitant]
  16. ACETYLSALICYLIC ACID SRT [Concomitant]

REACTIONS (26)
  - ABDOMINAL PAIN [None]
  - ABDOMINAL TENDERNESS [None]
  - ASPARTATE AMINOTRANSFERASE INCREASED [None]
  - ASTHENIA [None]
  - BLOOD ALBUMIN DECREASED [None]
  - BLOOD ALKALINE PHOSPHATASE INCREASED [None]
  - BREATH SOUNDS ABNORMAL [None]
  - CHEST X-RAY ABNORMAL [None]
  - COAGULOPATHY [None]
  - DEHYDRATION [None]
  - DRUG TOXICITY [None]
  - HEPATOMEGALY [None]
  - HYPOVOLAEMIA [None]
  - LIVER TENDERNESS [None]
  - LOCALISED OEDEMA [None]
  - MALAISE [None]
  - NAUSEA [None]
  - NEOPLASM PROGRESSION [None]
  - NEUTROPENIA [None]
  - PROTEIN TOTAL DECREASED [None]
  - PULMONARY EMBOLISM [None]
  - PYREXIA [None]
  - TACHYCARDIA [None]
  - THROMBOCYTOPENIA [None]
  - VOMITING [None]
  - WHITE BLOOD CELL COUNT DECREASED [None]
